FAERS Safety Report 8294215-2 (Version None)
Quarter: 2012Q2

REPORT INFORMATION
  Report Type: 
  Country: None (occurrence: None)
  Receive Date: 20120418
  Receipt Date: 20120416
  Transmission Date: 20120825
  Serious: Yes (Other)
  Sender: FDA-Public Use
  Company Number: PHHY2011HN02275

PATIENT
  Age: 11 Year
  Sex: Female

DRUGS (1)
  1. TRILEPTAL [Suspect]
     Dosage: 300 MG, UNK
     Route: 048

REACTIONS (2)
  - EYELID PTOSIS [None]
  - MUSCULAR WEAKNESS [None]
